FAERS Safety Report 15208246 (Version 1)
Quarter: 2018Q3

REPORT INFORMATION
  Report Type: Spontaneous
  Country: FR (occurrence: FR)
  Receive Date: 20180727
  Receipt Date: 20180727
  Transmission Date: 20181010
  Serious: Yes (Other)
  Sender: FDA-Public Use
  Company Number: FR-ASTRAZENECA-2018SE95018

PATIENT
  Age: 83 Year
  Sex: Female

DRUGS (1)
  1. LYNPARZA [Suspect]
     Active Substance: OLAPARIB
     Route: 048
     Dates: end: 201806

REACTIONS (3)
  - Drug ineffective [Unknown]
  - Neoplasm [Unknown]
  - Metastasis [Unknown]

NARRATIVE: CASE EVENT DATE: 201806
